FAERS Safety Report 7438373-8 (Version None)
Quarter: 2011Q2

REPORT INFORMATION
  Report Type: 
  Country: None (occurrence: None)
  Receive Date: 20110426
  Receipt Date: 20110329
  Transmission Date: 20111010
  Serious: Yes (Hospitalization, Other)
  Sender: FDA-Public Use
  Company Number: US-BAYER-201041830NA

PATIENT
  Age: 32 Year
  Sex: Female
  Weight: 113.38 kg

DRUGS (16)
  1. YAZ [Suspect]
     Indication: PREMENSTRUAL SYNDROME
  2. ALLEGRA D 24 HOUR [Concomitant]
     Dosage: UNK
     Dates: end: 20070101
  3. YAZ [Suspect]
     Indication: CONTRACEPTION
     Dosage: UNK
     Route: 048
     Dates: start: 20071001, end: 20071201
  4. YAZ [Suspect]
     Indication: MENSTRUATION IRREGULAR
  5. ANTIBIOTICS [Concomitant]
     Dosage: UNK
     Dates: start: 19990101, end: 20080101
  6. YASMIN [Suspect]
     Indication: CONTRACEPTION
     Dosage: UNK
     Route: 048
     Dates: start: 20071001, end: 20071201
  7. YASMIN [Suspect]
     Indication: PREMENSTRUAL SYNDROME
  8. CHANTIX [Concomitant]
     Dosage: UNK
     Dates: end: 20070601
  9. ASMANEX TWISTHALER [Concomitant]
     Dosage: UNK
     Dates: end: 20070101
  10. YAZ [Suspect]
  11. YASMIN [Suspect]
     Indication: MENSTRUATION IRREGULAR
  12. YASMIN [Suspect]
  13. NAPROXEN [Concomitant]
     Dosage: UNK
     Dates: start: 20070101, end: 20090101
  14. ALPRAZOLAM [Concomitant]
     Indication: ANXIETY
     Dosage: UNK
     Dates: start: 20020101, end: 20070101
  15. WELLBUTRIN [Concomitant]
     Indication: DEPRESSION
     Dosage: UNK
     Dates: start: 20070101, end: 20080101
  16. PROAIR HFA [Concomitant]
     Dosage: UNK
     Dates: end: 20070101

REACTIONS (1)
  - PULMONARY EMBOLISM [None]
